FAERS Safety Report 7009282-3 (Version None)
Quarter: 2010Q3

REPORT INFORMATION
  Report Type: 
  Country: None (occurrence: None)
  Receive Date: 20100923
  Receipt Date: 20100915
  Transmission Date: 20110219
  Serious: Yes (Hospitalization, Disabling)
  Sender: FDA-Public Use
  Company Number: JP-BRISTOL-MYERS SQUIBB COMPANY-14456081

PATIENT
  Age: 69 Year
  Sex: Male

DRUGS (16)
  1. TAXOL [Suspect]
     Indication: LUNG NEOPLASM MALIGNANT
     Dosage: 06NOV2007-27NOV2007(350MG 1 PER 1 MONTH) 18DEC2007-23JAN2008(120MG;1 PER 1 WEEK)
     Route: 041
     Dates: start: 20071106, end: 20071106
  2. PARAPLATIN [Suspect]
     Indication: LUNG NEOPLASM MALIGNANT
     Dosage: FROM 06-NOV-2007 TO 16-JAN-2008 ;DURATION OF THERAPY 3 DAYS
     Route: 041
     Dates: start: 20071106, end: 20071106
  3. ACINON [Concomitant]
     Route: 048
     Dates: start: 20030121, end: 20081008
  4. ALOSENN [Concomitant]
     Route: 048
     Dates: start: 20070810, end: 20080715
  5. LOXONIN [Concomitant]
     Route: 048
     Dates: start: 20071012, end: 20081008
  6. LENDORM [Concomitant]
     Route: 048
     Dates: start: 20071113, end: 20080420
  7. MAGLAX [Concomitant]
     Route: 048
     Dates: start: 20071113, end: 20080707
  8. NOVORAPID [Concomitant]
     Route: 058
     Dates: start: 20040416, end: 20081008
  9. NOVOLIN 50R [Concomitant]
     Route: 058
     Dates: start: 20040416, end: 20081008
  10. NABOAL [Concomitant]
     Dosage: NABOAL SR
     Route: 048
     Dates: start: 20080109, end: 20081008
  11. SHAKUYAKU-KANZO-TO [Concomitant]
     Route: 048
     Dates: start: 20071207, end: 20080420
  12. MOBIC [Concomitant]
     Route: 048
     Dates: start: 20071207, end: 20080420
  13. GASTER D [Concomitant]
     Route: 048
     Dates: start: 20071207, end: 20080420
  14. METHYCOBAL [Concomitant]
     Route: 048
     Dates: start: 20071207, end: 20080804
  15. KINEDAK [Concomitant]
     Route: 048
     Dates: start: 20080109, end: 20080804
  16. MEDICON [Concomitant]
     Route: 048
     Dates: end: 20081008

REACTIONS (4)
  - ARTHRALGIA [None]
  - BONE MARROW FAILURE [None]
  - NEUROPATHY PERIPHERAL [None]
  - PNEUMOTHORAX [None]
